FAERS Safety Report 7102779-7 (Version None)
Quarter: 2010Q4

REPORT INFORMATION
  Report Type: 
  Country: None (occurrence: None)
  Receive Date: 20101115
  Receipt Date: 20101108
  Transmission Date: 20110411
  Serious: Yes (Other)
  Sender: FDA-Public Use
  Company Number: BR-PFIZER INC-2010143421

PATIENT
  Sex: Female

DRUGS (2)
  1. PRISTIQ [Suspect]
     Indication: DEPRESSION
     Dosage: 2 TABLETS ONCE DAILY
     Route: 048
     Dates: start: 20080101, end: 20090101
  2. RIVOTRIL [Concomitant]
     Dosage: UNK
     Dates: start: 20070101

REACTIONS (7)
  - ANXIETY [None]
  - CHEST PAIN [None]
  - DEPRESSION [None]
  - NERVOUSNESS [None]
  - RETCHING [None]
  - SUICIDAL IDEATION [None]
  - WEIGHT INCREASED [None]
